FAERS Safety Report 5775906-1 (Version None)
Quarter: 2008Q2

REPORT INFORMATION
  Report Type: 
  Country: None (occurrence: None)
  Receive Date: 20080617
  Receipt Date: 20080606
  Transmission Date: 20081010
  Serious: Yes (Other)
  Sender: FDA-Public Use
  Company Number: GB-PFIZER INC-2008048195

PATIENT
  Age: 47 Year
  Sex: Male
  Weight: 101.8 kg

DRUGS (1)
  1. CHANTIX [Suspect]
     Indication: SMOKING CESSATION THERAPY
     Route: 048
     Dates: start: 20080410, end: 20080420

REACTIONS (2)
  - ABDOMINAL PAIN [None]
  - ANGER [None]
